FAERS Safety Report 8605952-1 (Version None)
Quarter: 2012Q3

REPORT INFORMATION
  Report Type: 
  Country: None (occurrence: None)
  Receive Date: 20120820
  Receipt Date: 19921104
  Transmission Date: 20120928
  Serious: Yes (Life-Threatening, Hospitalization)
  Sender: FDA-Public Use
  Company Number: US-ROCHE-1098736

PATIENT
  Age: 56 Year
  Sex: Male

DRUGS (1)
  1. ACTIVASE [Suspect]
     Indication: MYOCARDIAL INFARCTION
     Dosage: 3 VIALS

REACTIONS (4)
  - DRUG INEFFECTIVE [None]
  - CARDIOGENIC SHOCK [None]
  - PNEUMONIA [None]
  - PULMONARY OEDEMA [None]
